FAERS Safety Report 12667634 (Version 1)
Quarter: 2016Q3

REPORT INFORMATION
  Report Type: Spontaneous
  Country: LT (occurrence: LT)
  Receive Date: 20160819
  Receipt Date: 20160819
  Transmission Date: 20161109
  Serious: Yes (Hospitalization)
  Sender: FDA-Public Use
  Company Number: LT-SA-2016SA146650

PATIENT
  Age: 56 Year
  Sex: Female

DRUGS (1)
  1. STILNOX [Suspect]
     Active Substance: ZOLPIDEM TARTRATE
     Indication: SUICIDE ATTEMPT
     Dosage: TOOK 4 TABLETS
     Route: 048

REACTIONS (2)
  - Off label use [Unknown]
  - Intentional overdose [Unknown]
